FAERS Safety Report 23433247 (Version 1)
Quarter: 2024Q1

REPORT INFORMATION
  Report Type: Spontaneous
  Country: US (occurrence: None)
  Receive Date: 20240120
  Receipt Date: 20240120
  Transmission Date: 20240410
  Serious: Yes (Life-Threatening, Disabling, Other)
  Sender: FDA-Public Use
  Company Number: None

PATIENT
  Age: 55 Year
  Sex: Male
  Weight: 76.5 kg

DRUGS (9)
  1. DICYCLOMINE [Suspect]
     Active Substance: DICYCLOMINE HYDROCHLORIDE
     Indication: Irritable bowel syndrome
     Dosage: FREQUENCY : 4 TIMES A DAY;?
     Route: 048
     Dates: start: 20211223, end: 20220510
  2. SIMVASTATIN [Suspect]
     Active Substance: SIMVASTATIN
  3. ZOLOFT [Suspect]
     Active Substance: SERTRALINE HYDROCHLORIDE
  4. REMERON [Suspect]
     Active Substance: MIRTAZAPINE
  5. CANNABIDIOL [Suspect]
     Active Substance: CANNABIDIOL
  6. HERBALS\TETRAHYDROCANNABINOL UNSPECIFIED [Suspect]
     Active Substance: HERBALS\TETRAHYDROCANNABINOL UNSPECIFIED
  7. ASPIRIN [Concomitant]
     Active Substance: ASPIRIN
  8. ADDERALL [Concomitant]
     Active Substance: AMPHETAMINE ASPARTATE\AMPHETAMINE SULFATE\DEXTROAMPHETAMINE SACCHARATE\DEXTROAMPHETAMINE SULFATE
  9. coffee skoal snuff [Concomitant]

REACTIONS (33)
  - Ocular hyperaemia [None]
  - Contraindicated product prescribed [None]
  - Contraindicated product administered [None]
  - Hallucination, visual [None]
  - Tinnitus [None]
  - Dizziness [None]
  - Dry mouth [None]
  - Dry skin [None]
  - Asthenia [None]
  - Myalgia [None]
  - Constipation [None]
  - Irritable bowel syndrome [None]
  - Photosensitivity reaction [None]
  - Oedema peripheral [None]
  - Night sweats [None]
  - Brain fog [None]
  - Speech disorder [None]
  - Mood swings [None]
  - Rash [None]
  - Eczema [None]
  - Gastrointestinal sounds abnormal [None]
  - Electric shock sensation [None]
  - Gallbladder disorder [None]
  - Onychomycosis [None]
  - Scrotal disorder [None]
  - Amnesia [None]
  - Weight decreased [None]
  - Blood cholesterol increased [None]
  - Expired product administered [None]
  - Chest pain [None]
  - Dyspnoea [None]
  - Parasite blood test positive [None]
  - Clostridium difficile infection [None]

NARRATIVE: CASE EVENT DATE: 20220510
